FAERS Safety Report 22923416 (Version 2)
Quarter: 2024Q3

REPORT INFORMATION
  Report Type: Report from Study
  Country: US (occurrence: US)
  Receive Date: 20230908
  Receipt Date: 20240918
  Transmission Date: 20241016
  Serious: No
  Sender: ASTELLAS
  Company Number: US-ASTELLAS-2022US032484

PATIENT
  Age: 60 Year
  Sex: Male

DRUGS (2)
  1. ENZALUTAMIDE [Suspect]
     Active Substance: ENZALUTAMIDE
     Indication: Prostate cancer
     Route: 048
     Dates: start: 20220704
  2. LUPRON [Suspect]
     Active Substance: LEUPROLIDE ACETATE
     Indication: Product used for unknown indication
     Route: 065
     Dates: start: 202208

REACTIONS (3)
  - Breast tenderness [Unknown]
  - Breast pain [Not Recovered/Not Resolved]
  - Gynaecomastia [Unknown]

NARRATIVE: CASE EVENT DATE: 20220720
